FAERS Safety Report 10255050 (Version 1)
Quarter: 2014Q2

REPORT INFORMATION
  Report Type: Spontaneous
  Country: CH (occurrence: CH)
  Receive Date: 20140624
  Receipt Date: 20140624
  Transmission Date: 20141212
  Serious: Yes (Hospitalization)
  Sender: FDA-Public Use
  Company Number: CH-009507513-1406CHE008882

PATIENT
  Age: 44 Year
  Sex: 0

DRUGS (13)
  1. TIENAM [Suspect]
     Indication: ARTHRITIS BACTERIAL
     Dosage: UNK
     Route: 042
     Dates: start: 20131028, end: 20140123
  2. CUBICIN [Suspect]
     Indication: ARTHRITIS BACTERIAL
     Dosage: 1050 MG, QD
     Route: 042
     Dates: start: 20131017, end: 20131119
  3. RIMACTAN [Suspect]
     Indication: ARTHRITIS BACTERIAL
     Dosage: 600 MG, BID
     Route: 048
     Dates: start: 20131023, end: 20131120
  4. TAVANIC [Suspect]
     Indication: ARTHRITIS BACTERIAL
     Dosage: 500 MG, BID
     Route: 048
     Dates: start: 20131018, end: 20131120
  5. KEFZOL [Suspect]
     Indication: ARTHRITIS BACTERIAL
     Dosage: 2 G, QID
     Dates: start: 20131111, end: 20131117
  6. FLOXAPEN [Suspect]
     Indication: ARTHRITIS BACTERIAL
     Dosage: UNK
     Dates: start: 20131017, end: 20131028
  7. HEPARIN [Concomitant]
     Dosage: UNK
     Dates: start: 20131113, end: 20140123
  8. OPIUM [Concomitant]
     Indication: DIARRHOEA
     Dosage: UNK
     Dates: start: 201310, end: 20131117
  9. IMODIUM [Concomitant]
     Indication: DIARRHOEA
     Dosage: UNK
     Dates: start: 20131117
  10. LASIX (FUROSEMIDE) [Concomitant]
     Dosage: UNK
     Dates: start: 201310, end: 20131119
  11. BELOC (METOPROLOL SUCCINATE) [Concomitant]
     Dosage: UNK
     Route: 042
     Dates: start: 20131116, end: 20131117
  12. ACTRAPID [Concomitant]
     Route: 042
  13. CORDARONE [Concomitant]
     Indication: ATRIAL FIBRILLATION
     Dosage: UNK
     Dates: start: 20131103, end: 20131115

REACTIONS (8)
  - Drug reaction with eosinophilia and systemic symptoms [Recovered/Resolved]
  - Tubulointerstitial nephritis [Unknown]
  - Condition aggravated [Unknown]
  - Erythema [Recovered/Resolved]
  - Pyrexia [Recovered/Resolved]
  - Eosinophil count increased [Recovered/Resolved]
  - Renal failure acute [Recovered/Resolved]
  - Rash macular [Unknown]
